FAERS Safety Report 9220796 (Version 1)
Quarter: 2013Q2

REPORT INFORMATION
  Report Type: Spontaneous
  Country: DE (occurrence: DE)
  Receive Date: 20130409
  Receipt Date: 20130409
  Transmission Date: 20140414
  Serious: Yes (Congenital Anomaly)
  Sender: FDA-Public Use
  Company Number: DE-TEVA-395707GER

PATIENT
  Sex: 0

DRUGS (9)
  1. LAMOTRIGINE [Suspect]
     Route: 064
     Dates: start: 20080922, end: 20090206
  2. ERGENYL CHRONO [Suspect]
     Route: 064
     Dates: start: 20080922, end: 20081231
  3. KEPPRA [Suspect]
     Route: 064
     Dates: start: 20080922, end: 20090213
  4. PHENYTOIN [Suspect]
     Route: 064
     Dates: start: 20080922, end: 20090213
  5. FRISIUM [Suspect]
     Route: 064
     Dates: start: 20080922, end: 20090213
  6. LUMINAL [Suspect]
     Route: 064
     Dates: start: 20080922, end: 20090213
  7. TAVOR [Suspect]
     Route: 064
  8. VIMPAT [Concomitant]
     Route: 064
     Dates: end: 20090204
  9. THYROXIN [Concomitant]
     Route: 064

REACTIONS (5)
  - Spina bifida [Not Recovered/Not Resolved]
  - Cleft lip and palate [Not Recovered/Not Resolved]
  - Limb malformation [Not Recovered/Not Resolved]
  - Microcephaly [Not Recovered/Not Resolved]
  - Maternal drugs affecting foetus [None]
